FAERS Safety Report 8097908-5 (Version None)
Quarter: 2012Q1

REPORT INFORMATION
  Report Type: 
  Country: None (occurrence: None)
  Receive Date: 20120128
  Receipt Date: 20110720
  Transmission Date: 20120608
  Serious: No
  Sender: FDA-Public Use
  Company Number: US-ABBOTT-11P-163-0840770-00

PATIENT
  Age: 57 Year
  Sex: Female

DRUGS (5)
  1. ASACOL [Concomitant]
     Indication: PRODUCT USED FOR UNKNOWN INDICATION
  2. UNKNOWN PAIN MEDICATION [Concomitant]
     Indication: PAIN
     Dosage: AS NEEDED
  3. CIPROFLOXACIN [Concomitant]
     Indication: CROHN'S DISEASE
     Dates: start: 20110323
  4. UNKNOWN NAUSEA MEDICATION [Concomitant]
     Indication: NAUSEA
     Dosage: AS NEEDED
  5. HUMIRA [Suspect]
     Indication: CROHN'S DISEASE
     Dates: start: 20110525

REACTIONS (4)
  - INJECTION SITE PAIN [None]
  - INJECTION SITE SWELLING [None]
  - INCORRECT DOSE ADMINISTERED [None]
  - WRONG TECHNIQUE IN DRUG USAGE PROCESS [None]
